FAERS Safety Report 8424832-8 (Version None)
Quarter: 2012Q2

REPORT INFORMATION
  Report Type: 
  Country: None (occurrence: None)
  Receive Date: 20120611
  Receipt Date: 20120607
  Transmission Date: 20120825
  Serious: No
  Sender: FDA-Public Use
  Company Number: US-BIOGENIDEC-2012BI020260

PATIENT
  Age: 50 Year
  Sex: Male

DRUGS (2)
  1. TYSABRI [Suspect]
     Indication: MULTIPLE SCLEROSIS
     Route: 042
     Dates: start: 20101227, end: 20111201
  2. TYSABRI [Suspect]
     Route: 042
     Dates: start: 20120401

REACTIONS (2)
  - MULTIPLE SCLEROSIS RELAPSE [None]
  - MULTIPLE SCLEROSIS [None]
